FAERS Safety Report 10561327 (Version 1)
Quarter: 2014Q4

REPORT INFORMATION
  Report Type: Spontaneous
  Country: BR (occurrence: BR)
  Receive Date: 20141103
  Receipt Date: 20141103
  Transmission Date: 20150529
  Serious: Yes (Other)
  Sender: FDA-Public Use
  Company Number: PHHY2014BR142966

PATIENT
  Age: 75 Year
  Sex: Female

DRUGS (5)
  1. OLCADIL [Suspect]
     Active Substance: CLOXAZOLAM
     Indication: ANXIETY
  2. OLCADIL [Suspect]
     Active Substance: CLOXAZOLAM
     Indication: NERVOUSNESS
     Dosage: 1 DF (1 MG), QD (IN THE MORNING)
     Route: 048
  3. DIOVAN [Suspect]
     Active Substance: VALSARTAN
     Indication: HYPERTENSION
     Dosage: 2.5 DF, QD (1.5 IN THE MORNING AND 1 AT NIGHT)
     Route: 048
  4. OLCADIL [Suspect]
     Active Substance: CLOXAZOLAM
     Indication: TENSION
  5. VITAMIN B12 [Concomitant]
     Active Substance: CYANOCOBALAMIN
     Indication: PRODUCT USED FOR UNKNOWN INDICATION
     Dosage: UNK DF, UNK
     Route: 065

REACTIONS (8)
  - Feeling abnormal [Unknown]
  - Fear [Unknown]
  - Cataract [Unknown]
  - Anxiety [Unknown]
  - Hypersensitivity [Unknown]
  - Depression [Recovering/Resolving]
  - Malaise [Unknown]
  - Blood pressure decreased [Unknown]

NARRATIVE: CASE EVENT DATE: 20141027
